FAERS Safety Report 24135881 (Version 1)
Quarter: 2024Q3

REPORT INFORMATION
  Report Type: Spontaneous
  Country: AU (occurrence: AU)
  Receive Date: 20240725
  Receipt Date: 20240725
  Transmission Date: 20241017
  Serious: Yes (Hospitalization, Other)
  Sender: SANDOZ
  Company Number: AU-ASPEN-AUS2024AU003706

PATIENT
  Age: 20 Year
  Sex: Female

DRUGS (6)
  1. DOXYLAMINE SUCCINATE AND PYRIDOXINE HYDROCHLORIDE [Suspect]
     Active Substance: DOXYLAMINE SUCCINATE\PYRIDOXINE HYDROCHLORIDE
     Indication: Hyperemesis gravidarum
     Dosage: UNK, QD
     Route: 065
  2. METOCLOPRAMIDE [Suspect]
     Active Substance: METOCLOPRAMIDE
     Indication: Hyperemesis gravidarum
     Dosage: 30 MG, QD
     Route: 065
  3. METOCLOPRAMIDE [Suspect]
     Active Substance: METOCLOPRAMIDE
     Dosage: UNK
     Route: 065
  4. OMEPRAZOLE [Suspect]
     Active Substance: OMEPRAZOLE
     Indication: Hyperemesis gravidarum
     Dosage: 20 MG, QD
     Route: 065
  5. ONDANSETRON [Suspect]
     Active Substance: ONDANSETRON
     Indication: Hyperemesis gravidarum
     Dosage: 24 MG, QD
     Route: 065
  6. PROCHLORPERAZINE [Suspect]
     Active Substance: PROCHLORPERAZINE
     Indication: Hyperemesis gravidarum
     Dosage: 12.5 MG
     Route: 042

REACTIONS (11)
  - Drug ineffective [Unknown]
  - Oculogyric crisis [Unknown]
  - Maternal exposure during pregnancy [Unknown]
  - Anxiety [Unknown]
  - Akathisia [Unknown]
  - Agitation [Unknown]
  - Disturbance in attention [Unknown]
  - Feeling abnormal [Unknown]
  - Off label use [Unknown]
  - Restlessness [Unknown]
  - Vision blurred [Unknown]
